FAERS Safety Report 8067312-4 (Version None)
Quarter: 2012Q1

REPORT INFORMATION
  Report Type: 
  Country: None (occurrence: None)
  Receive Date: 20120124
  Receipt Date: 20120120
  Transmission Date: 20120608
  Serious: Yes (Hospitalization)
  Sender: FDA-Public Use
  Company Number: US-GLAXOSMITHKLINE-B0718238A

PATIENT
  Age: 75 Year
  Sex: Male

DRUGS (1)
  1. AVANDIA [Suspect]
     Indication: DIABETES MELLITUS
     Route: 048
     Dates: start: 19990824, end: 20000417

REACTIONS (4)
  - RENAL FAILURE [None]
  - ARRHYTHMIA [None]
  - CARDIAC FAILURE CONGESTIVE [None]
  - STENT PLACEMENT [None]
